FAERS Safety Report 4504322-5 (Version None)
Quarter: 2004Q4

REPORT INFORMATION
  Report Type: 
  Country: None (occurrence: None)
  Receive Date: 20041118
  Receipt Date: 20041115
  Transmission Date: 20050328
  Serious: Yes (Hospitalization)
  Sender: FDA-Public Use
  Company Number: 200414256FR

PATIENT
  Age: 71 Year
  Sex: Female
  Weight: 61 kg

DRUGS (6)
  1. LASILIX [Suspect]
     Route: 048
     Dates: start: 20040923, end: 20041001
  2. ACUPAN [Suspect]
     Route: 042
     Dates: start: 20040923, end: 20040930
  3. MOTILIUM [Suspect]
     Route: 048
     Dates: start: 20040920, end: 20040930
  4. KARDEGIC [Suspect]
     Route: 048
     Dates: end: 20041002
  5. DEROXAT [Suspect]
     Route: 048
     Dates: start: 20040928, end: 20041002
  6. PERFALGAN [Suspect]
     Route: 042
     Dates: start: 20040930, end: 20040930

REACTIONS (10)
  - ABDOMINAL PAIN [None]
  - ACIDOSIS [None]
  - ASCITES [None]
  - CARDIO-RESPIRATORY ARREST [None]
  - CARDIOGENIC SHOCK [None]
  - HAEMODYNAMIC INSTABILITY [None]
  - PLEURISY [None]
  - TORSADE DE POINTES [None]
  - VENTRICULAR TACHYCARDIA [None]
  - VOMITING [None]
